FAERS Safety Report 7542348-8 (Version None)
Quarter: 2011Q2

REPORT INFORMATION
  Report Type: 
  Country: None (occurrence: None)
  Receive Date: 20110524
  Receipt Date: 20110204
  Transmission Date: 20111010
  Serious: No
  Sender: FDA-Public Use
  Company Number: 027054

PATIENT
  Sex: Female

DRUGS (1)
  1. CIMZIA [Suspect]
     Dosage: 2 SHOTS OF CIMZIA SUBCUTANEOUS
     Dates: start: 20110101

REACTIONS (5)
  - BLISTER [None]
  - SECRETION DISCHARGE [None]
  - SCAB [None]
  - SKIN ULCER [None]
  - PRURITUS [None]
